FAERS Safety Report 19680742 (Version 2)
Quarter: 2021Q3

REPORT INFORMATION
  Report Type: Spontaneous
  Country: NL (occurrence: NL)
  Receive Date: 20210810
  Receipt Date: 20210823
  Transmission Date: 20211014
  Serious: Yes (Other)
  Sender: FDA-Public Use
  Company Number: NL-OTSUKA-2021_027508

PATIENT
  Age: 50 Year
  Sex: Female
  Weight: 58 kg

DRUGS (2)
  1. ARIPIPRAZOLE. [Suspect]
     Active Substance: ARIPIPRAZOLE
     Indication: PSYCHOTIC DISORDER
     Dosage: 10 MG, QD
     Route: 065
     Dates: start: 202101
  2. ALPRAZOLAM. [Concomitant]
     Active Substance: ALPRAZOLAM
     Indication: PRODUCT USED FOR UNKNOWN INDICATION
     Dosage: 1 MG
     Route: 065

REACTIONS (4)
  - Poor quality sleep [Not Recovered/Not Resolved]
  - Salivary hypersecretion [Not Recovered/Not Resolved]
  - Tremor [Not Recovered/Not Resolved]
  - Product use in unapproved indication [Unknown]

NARRATIVE: CASE EVENT DATE: 202101
